FAERS Safety Report 8575779-8 (Version None)
Quarter: 2012Q3

REPORT INFORMATION
  Report Type: 
  Country: None (occurrence: None)
  Receive Date: 20120807
  Receipt Date: 20120727
  Transmission Date: 20120928
  Serious: Yes (Other)
  Sender: FDA-Public Use
  Company Number: US-SANOFI-AVENTIS-2012SA054041

PATIENT
  Age: 65 Year
  Sex: Female

DRUGS (1)
  1. PLAQUENIL [Suspect]
     Indication: RHEUMATOID ARTHRITIS

REACTIONS (1)
  - BREAST CANCER [None]
